FAERS Safety Report 21071504 (Version 2)
Quarter: 2022Q3

REPORT INFORMATION
  Report Type: Report from Study
  Country: US (occurrence: US)
  Receive Date: 20220712
  Receipt Date: 20220726
  Transmission Date: 20221027
  Serious: Yes (Other)
  Sender: FDA-Public Use
  Company Number: US-UCBSA-2022030516

PATIENT
  Age: 59 Year
  Sex: Female

DRUGS (1)
  1. CERTOLIZUMAB PEGOL [Suspect]
     Active Substance: CERTOLIZUMAB PEGOL
     Indication: Rheumatoid arthritis
     Dosage: 400 MILLIGRAM, EV 2 WEEKS(QOW)
     Route: 058
     Dates: start: 20220511, end: 20220714

REACTIONS (3)
  - Rheumatoid arthritis [Not Recovered/Not Resolved]
  - Ankle fracture [Not Recovered/Not Resolved]
  - Ankle operation [Not Recovered/Not Resolved]

NARRATIVE: CASE EVENT DATE: 20220511
